FAERS Safety Report 4359586-8 (Version None)
Quarter: 2004Q2

REPORT INFORMATION
  Report Type: 
  Country: None (occurrence: None)
  Receive Date: 20040513
  Receipt Date: 20040430
  Transmission Date: 20050107
  Serious: Yes (Other)
  Sender: FDA-Public Use
  Company Number: 2004029319

PATIENT
  Age: 47 Year
  Sex: Male

DRUGS (3)
  1. GEODON [Suspect]
     Indication: ILL-DEFINED DISORDER
     Dosage: 80 MG (UNK, 2 IN 1 D), UNKNOWN
  2. LITHIUM (LITHIUM) [Suspect]
     Indication: ILL-DEFINED DISORDER
     Dosage: 1500 (UNKNOWN)
  3. FLUPHENAZINE DECANOATE (FLUPHENAZINE DECANOATE) [Concomitant]

REACTIONS (4)
  - DRUG LEVEL INCREASED [None]
  - MEDICATION ERROR [None]
  - NEUROLEPTIC MALIGNANT SYNDROME [None]
  - RENAL FAILURE ACUTE [None]
